FAERS Safety Report 5229454-8 (Version None)
Quarter: 2007Q1

REPORT INFORMATION
  Report Type: 
  Country: None (occurrence: None)
  Receive Date: 20070131
  Receipt Date: 20070117
  Transmission Date: 20070707
  Serious: Yes (Hospitalization)
  Sender: FDA-Public Use
  Company Number: 2007PV028575

PATIENT
  Age: 59 Year
  Sex: Male
  Weight: 110.2241 kg

DRUGS (7)
  1. BYETTA [Suspect]
     Indication: DIABETES MELLITUS NON-INSULIN-DEPENDENT
     Dosage: 10 + 5 MCG; BID; SC
     Route: 058
     Dates: start: 20060919, end: 20061121
  2. BYETTA [Suspect]
     Indication: DIABETES MELLITUS NON-INSULIN-DEPENDENT
     Dosage: 10 + 5 MCG; BID; SC
     Route: 058
     Dates: start: 20061122
  3. KEPPRA [Concomitant]
  4. CYMBALTA [Concomitant]
  5. EFFEXOR [Concomitant]
  6. XANAX [Concomitant]
  7. WELLBUTRIN [Concomitant]

REACTIONS (6)
  - CONVULSION [None]
  - DYSARTHRIA [None]
  - FALL [None]
  - GAIT DISTURBANCE [None]
  - SOMNOLENCE [None]
  - WEIGHT INCREASED [None]
